FAERS Safety Report 8390321-2 (Version None)
Quarter: 2012Q2

REPORT INFORMATION
  Report Type: 
  Country: None (occurrence: None)
  Receive Date: 20120529
  Receipt Date: 20120523
  Transmission Date: 20120825
  Serious: Yes (Other)
  Sender: FDA-Public Use
  Company Number: ES-PFIZER INC-2012124383

PATIENT
  Age: 70 Year
  Sex: Male

DRUGS (3)
  1. VANCOMYCIN [Suspect]
     Indication: POSTOPERATIVE WOUND INFECTION
     Dosage: 1 G, 2X/DAY
     Dates: start: 20120319, end: 20120322
  2. CLINDAMYCIN HCL [Suspect]
     Indication: POSTOPERATIVE WOUND INFECTION
     Dosage: 600 MG, 3X/DAY
     Route: 048
     Dates: start: 20120312, end: 20120318
  3. ZYVOX [Suspect]
     Indication: POSTOPERATIVE WOUND INFECTION
     Dosage: 600 MG, 2X/DAY
     Route: 048
     Dates: start: 20120323

REACTIONS (2)
  - SKIN CANDIDA [None]
  - POSTOPERATIVE WOUND INFECTION [None]
